FAERS Safety Report 5523857-X (Version None)
Quarter: 2007Q4

REPORT INFORMATION
  Report Type: 
  Country: None (occurrence: None)
  Receive Date: 20071121
  Receipt Date: 20071115
  Transmission Date: 20080405
  Serious: Yes (Other)
  Sender: FDA-Public Use
  Company Number: CH-SHR-CH-2007-010740

PATIENT
  Age: 25 Year
  Sex: Female
  Weight: 73 kg

DRUGS (2)
  1. YASMIN [Suspect]
     Indication: ORAL CONTRACEPTION
     Dosage: UNK, UNK
     Route: 048
     Dates: start: 20050701
  2. YASMIN [Suspect]
     Dosage: UNK, 21D/28D
     Route: 048
     Dates: start: 20070201, end: 20070301

REACTIONS (3)
  - PLACENTA ACCRETA [None]
  - POSTPARTUM HAEMORRHAGE [None]
  - TWIN PREGNANCY [None]
